FAERS Safety Report 15656233 (Version 1)
Quarter: 2018Q4

REPORT INFORMATION
  Report Type: Spontaneous
  Country: US (occurrence: US)
  Receive Date: 20181126
  Receipt Date: 20181126
  Transmission Date: 20190205
  Serious: Yes (Death, Hospitalization)
  Sender: FDA-Public Use
  Company Number: US-LPDUSPRD-20182173

PATIENT
  Age: 69 Year
  Sex: Female

DRUGS (2)
  1. NO DRUG NAME [Concomitant]
     Dosage: UNKNOWN
     Route: 065
  2. DEXAMETHASONE SODIUM PHOSPHATE INJECTION, USP (4901-25) [Suspect]
     Active Substance: DEXAMETHASONE SODIUM PHOSPHATE
     Dosage: UNKNOWN
     Route: 065

REACTIONS (5)
  - Disease progression [Fatal]
  - Product used for unknown indication [Unknown]
  - Encephalitis [Fatal]
  - Central nervous system necrosis [Fatal]
  - Balamuthia infection [Fatal]
